FAERS Safety Report 23784999 (Version 1)
Quarter: 2024Q2

REPORT INFORMATION
  Report Type: Spontaneous
  Country: CN (occurrence: CN)
  Receive Date: 20240425
  Receipt Date: 20240425
  Transmission Date: 20240715
  Serious: Yes (Hospitalization)
  Sender: FDA-Public Use
  Company Number: CN-TAKEDA-2024TUS038251

PATIENT
  Age: 56 Year
  Sex: Female

DRUGS (2)
  1. ALBUMIN HUMAN [Suspect]
     Active Substance: ALBUMIN HUMAN
     Indication: Adjuvant therapy
     Dosage: 10 GRAM, QD
     Route: 041
     Dates: start: 20240307, end: 20240310
  2. Human interleukin-11 [Concomitant]
     Indication: Symptomatic treatment
     Dosage: 3 MILLIGRAM, QD
     Route: 058
     Dates: start: 20240307, end: 20240310

REACTIONS (1)
  - Dermatitis allergic [Recovering/Resolving]

NARRATIVE: CASE EVENT DATE: 20240308
